FAERS Safety Report 13431842 (Version 1)
Quarter: 2017Q2

REPORT INFORMATION
  Report Type: Spontaneous
  Country: US (occurrence: US)
  Receive Date: 20170412
  Receipt Date: 20170412
  Transmission Date: 20170830
  Serious: No
  Sender: FDA-Public Use
  Company Number: US-JNJFOC-20170304805

PATIENT
  Sex: Female

DRUGS (1)
  1. XARELTO [Suspect]
     Active Substance: RIVAROXABAN
     Indication: THROMBOSIS
     Route: 048
     Dates: start: 2016

REACTIONS (7)
  - Muscular weakness [Unknown]
  - Fluid retention [Unknown]
  - Weight increased [Unknown]
  - Joint lock [Unknown]
  - Tendonitis [Unknown]
  - Periarthritis [Unknown]
  - Arthralgia [Unknown]
